FAERS Safety Report 14198557 (Version 1)
Quarter: 2017Q4

REPORT INFORMATION
  Report Type: Spontaneous
  Country: US (occurrence: US)
  Receive Date: 20171117
  Receipt Date: 20171117
  Transmission Date: 20180321
  Serious: No
  Sender: FDA-Public Use
  Company Number: US-ELI_LILLY_AND_COMPANY-US201710010494

PATIENT
  Sex: Female

DRUGS (2)
  1. BASAGLAR [Suspect]
     Active Substance: INSULIN GLARGINE
     Dosage: 48 IU, UNKNOWN
     Route: 065
     Dates: start: 20170911
  2. BASAGLAR [Suspect]
     Active Substance: INSULIN GLARGINE
     Indication: TYPE 2 DIABETES MELLITUS
     Dosage: 48 IU, UNKNOWN
     Route: 065

REACTIONS (3)
  - Blood glucose increased [Not Recovered/Not Resolved]
  - Drug dose omission [Unknown]
  - Visual impairment [Not Recovered/Not Resolved]
